FAERS Safety Report 7326498-7 (Version None)
Quarter: 2011Q1

REPORT INFORMATION
  Report Type: 
  Country: None (occurrence: None)
  Receive Date: 20110222
  Receipt Date: 20110211
  Transmission Date: 20110831
  Serious: Yes (Hospitalization, Other)
  Sender: FDA-Public Use
  Company Number: 20109794

PATIENT
  Sex: Female

DRUGS (1)
  1. LIORESAL [Suspect]
     Indication: MUSCLE SPASTICITY
     Dosage: SEE B5 MCG, DAILY, INTRATHECAL
     Route: 037

REACTIONS (6)
  - CONFUSIONAL STATE [None]
  - SEROMA [None]
  - MEDICAL DEVICE COMPLICATION [None]
  - SPINAL DISORDER [None]
  - NAUSEA [None]
  - SWELLING [None]
